FAERS Safety Report 7487952-0 (Version None)
Quarter: 2011Q2

REPORT INFORMATION
  Report Type: 
  Country: None (occurrence: None)
  Receive Date: 20110518
  Receipt Date: 20110508
  Transmission Date: 20111010
  Serious: Yes (Hospitalization)
  Sender: FDA-Public Use
  Company Number: JP-BAXTER-2011BH012500

PATIENT
  Age: 60 Year
  Sex: Male
  Weight: 57 kg

DRUGS (13)
  1. PREDNISOLONE [Concomitant]
     Indication: NON-SMALL CELL LUNG CANCER
     Route: 048
     Dates: start: 20110411, end: 20110417
  2. BAKTAR [Concomitant]
     Indication: PROPHYLAXIS
     Route: 048
     Dates: start: 20110411
  3. PREDNISOLONE [Concomitant]
     Route: 048
     Dates: start: 20110426
  4. MEDICON [Concomitant]
     Indication: CHRONIC OBSTRUCTIVE PULMONARY DISEASE
     Route: 048
     Dates: start: 20101201, end: 20110408
  5. FAMOTIDINE [Concomitant]
     Indication: PRODUCT USED FOR UNKNOWN INDICATION
     Route: 048
     Dates: start: 20110408
  6. ALENDRONATE SODIUM [Concomitant]
     Indication: PROPHYLAXIS
     Route: 048
     Dates: start: 20110421
  7. CYCLOPHOSPHAMIDE [Suspect]
     Indication: NON-SMALL CELL LUNG CANCER
     Route: 042
     Dates: start: 20110314, end: 20110314
  8. BLINDED STUDY MEDICATION [Suspect]
     Indication: NON-SMALL CELL LUNG CANCER
     Route: 058
     Dates: start: 20110317, end: 20110331
  9. TIOTROPIUM BROMIDE [Concomitant]
     Indication: CHRONIC OBSTRUCTIVE PULMONARY DISEASE
     Route: 055
     Dates: start: 20100801
  10. PREDNISOLONE [Concomitant]
     Route: 048
     Dates: start: 20110425, end: 20110425
  11. LANSOPRAZOLE [Concomitant]
     Indication: REFLUX OESOPHAGITIS
     Route: 048
     Dates: start: 20100308, end: 20110407
  12. METHYLPREDNISOLONE SODIUM SUCCINATE [Concomitant]
     Indication: NON-SMALL CELL LUNG CANCER
     Route: 042
     Dates: start: 20110408, end: 20110410
  13. PREDNISOLONE [Concomitant]
     Route: 048
     Dates: start: 20110418, end: 20110424

REACTIONS (1)
  - RADIATION PNEUMONITIS [None]
